FAERS Safety Report 12206153 (Version 1)
Quarter: 2016Q1

REPORT INFORMATION
  Report Type: Spontaneous
  Country: FR (occurrence: FR)
  Receive Date: 20160324
  Receipt Date: 20160324
  Transmission Date: 20160526
  Serious: Yes (Life-Threatening, Hospitalization, Other)
  Sender: FDA-Public Use
  Company Number: FR-BRISTOL-MYERS SQUIBB COMPANY-BMS-2016-018487

PATIENT
  Age: 83 Year
  Sex: Male

DRUGS (3)
  1. COUMADINE [Suspect]
     Active Substance: WARFARIN SODIUM
     Indication: PULMONARY EMBOLISM
     Dosage: UNK UNK, BID
     Route: 065
     Dates: start: 20160205
  2. COUMADINE [Suspect]
     Active Substance: WARFARIN SODIUM
     Dosage: 1 MG, QD
     Route: 065
     Dates: start: 20160216
  3. CALCIPARINE [Suspect]
     Active Substance: HEPARIN CALCIUM
     Indication: PULMONARY EMBOLISM
     Dosage: UNK
     Route: 030
     Dates: start: 20160205, end: 20160211

REACTIONS (9)
  - Hepatocellular injury [Unknown]
  - Acute kidney injury [Unknown]
  - Overdose [Unknown]
  - Shock haemorrhagic [Recovered/Resolved]
  - Therapeutic embolisation [Unknown]
  - Packed red blood cell transfusion [Unknown]
  - Haemoglobin decreased [Recovered/Resolved]
  - International normalised ratio increased [Recovered/Resolved]
  - Muscle haemorrhage [Recovered/Resolved]

NARRATIVE: CASE EVENT DATE: 20160208
